FAERS Safety Report 24320819 (Version 2)
Quarter: 2024Q3

REPORT INFORMATION
  Report Type: Report from Study
  Country: US (occurrence: US)
  Receive Date: 20240915
  Receipt Date: 20240923
  Transmission Date: 20241016
  Serious: Yes (Death, Hospitalization)
  Sender: ARDELYX
  Company Number: US-ARDELYX-2024ARDX006777

PATIENT
  Age: 68 Year
  Sex: Female

DRUGS (1)
  1. XPHOZAH [Suspect]
     Active Substance: TENAPANOR HYDROCHLORIDE
     Indication: Chronic kidney disease
     Dosage: 30 MILLIGRAM, BID
     Route: 048

REACTIONS (3)
  - Death [Fatal]
  - Blood glucose decreased [Unknown]
  - Fall [Unknown]

NARRATIVE: CASE EVENT DATE: 20240816
